FAERS Safety Report 5262127-4 (Version None)
Quarter: 2007Q1

REPORT INFORMATION
  Report Type: 
  Country: None (occurrence: None)
  Receive Date: 20070311
  Receipt Date: 20070228
  Transmission Date: 20070707
  Serious: Yes (Other)
  Sender: FDA-Public Use
  Company Number: 2006UW12092

PATIENT
  Sex: Male
  Weight: 90 kg

DRUGS (3)
  1. SEROQUEL [Suspect]
     Route: 048
     Dates: start: 20030701, end: 20031201
  2. ZYPREXA [Suspect]
     Dates: start: 20030101
  3. RISPERDAL [Concomitant]

REACTIONS (4)
  - CHOLELITHIASIS [None]
  - DIABETES MELLITUS [None]
  - INJURY [None]
  - PANCREATITIS [None]
